FAERS Safety Report 4545352-7 (Version None)
Quarter: 2004Q4

REPORT INFORMATION
  Report Type: 
  Country: None (occurrence: None)
  Receive Date: 20041230
  Receipt Date: 20041215
  Transmission Date: 20050328
  Serious: Yes (Hospitalization)
  Sender: FDA-Public Use
  Company Number: 2004-DE-06326BY(0)

PATIENT
  Sex: Male

DRUGS (8)
  1. MICARDIS HCT [Suspect]
     Dates: start: 20040227, end: 20040323
  2. ASPIRIN [Concomitant]
  3. SIMVASTATIN [Concomitant]
  4. ENALAPRIL (ENALAPRIL) [Concomitant]
  5. DILATREND (CARVEDIOLOL) [Concomitant]
  6. FUROSEMIDE [Concomitant]
  7. PLAVIX [Concomitant]
  8. HCT [Concomitant]

REACTIONS (1)
  - UNEVALUABLE EVENT [None]
